FAERS Safety Report 4526525-6 (Version None)
Quarter: 2004Q4

REPORT INFORMATION
  Report Type: 
  Country: None (occurrence: None)
  Receive Date: 20041210
  Receipt Date: 20041201
  Transmission Date: 20050328
  Serious: Yes (Hospitalization, Other)
  Sender: FDA-Public Use
  Company Number: 2004-11-1810

PATIENT
  Age: 24 Year
  Sex: Male

DRUGS (1)
  1. TEMODAR [Suspect]
     Indication: METASTASES TO CENTRAL NERVOUS SYSTEM
     Dosage: 120 MG ORAL
     Route: 048

REACTIONS (2)
  - DYSPHAGIA [None]
  - METASTASES TO LUNG [None]
